FAERS Safety Report 11417469 (Version 1)
Quarter: 2015Q3

REPORT INFORMATION
  Report Type: Spontaneous
  Country: US (occurrence: US)
  Receive Date: 20150825
  Receipt Date: 20150825
  Transmission Date: 20151125
  Serious: No
  Sender: FDA-Public Use
  Company Number: US-TARO-2015TAR00217

PATIENT
  Sex: Female

DRUGS (1)
  1. CLOBETASOL [Suspect]
     Active Substance: CLOBETASOL
     Indication: LICHEN PLANUS
     Dosage: UNK

REACTIONS (2)
  - Inappropriate schedule of drug administration [Recovered/Resolved]
  - Erythema [Unknown]
